APPROVED DRUG PRODUCT: DURLAZA
Active Ingredient: ASPIRIN
Strength: 162.5MG
Dosage Form/Route: CAPSULE, EXTENDED RELEASE;ORAL
Application: N200671 | Product #001
Applicant: HESP LLC
Approved: Sep 4, 2015 | RLD: Yes | RS: No | Type: DISCN